FAERS Safety Report 6418674-2 (Version None)
Quarter: 2009Q4

REPORT INFORMATION
  Report Type: 
  Country: None (occurrence: None)
  Receive Date: 20091026
  Receipt Date: 20091013
  Transmission Date: 20100525
  Serious: Yes (Other)
  Sender: FDA-Public Use
  Company Number: ADR39612009

PATIENT
  Age: 63 Year
  Sex: Female

DRUGS (6)
  1. SIMVASTATIN [Suspect]
     Indication: HYPERCHOLESTEROLAEMIA
     Dosage: 20 MG, 1/1 DAYS ORAL ; 40 MG 1/1 DAYS ORAL
     Route: 048
     Dates: start: 20070801, end: 20080201
  2. SIMVASTATIN [Suspect]
     Indication: HYPERCHOLESTEROLAEMIA
     Dosage: 20 MG, 1/1 DAYS ORAL ; 40 MG 1/1 DAYS ORAL
     Route: 048
     Dates: start: 20080201, end: 20080701
  3. BISOPROLOL [Concomitant]
  4. LEVOTHYROXINE SODIUM [Concomitant]
  5. MOXONIDINE [Concomitant]
  6. PERINDOPRIL [Concomitant]

REACTIONS (1)
  - AMNESIA [None]
